FAERS Safety Report 6581757-0 (Version None)
Quarter: 2010Q1

REPORT INFORMATION
  Report Type: 
  Country: None (occurrence: None)
  Receive Date: 20100215
  Receipt Date: 20100203
  Transmission Date: 20100710
  Serious: Yes (Other)
  Sender: FDA-Public Use
  Company Number: PHHY2010CY03182

PATIENT
  Sex: Male
  Weight: 66 kg

DRUGS (2)
  1. ZOMETA [Suspect]
     Indication: METASTASES TO BONE
     Dosage: 4 MG, QMO
     Route: 042
     Dates: start: 20090729, end: 20091123
  2. OXYCONTIN [Concomitant]
     Indication: ANALGESIC THERAPY
     Dosage: 30 MG, BID
     Route: 048
     Dates: start: 20090906

REACTIONS (4)
  - OSTEONECROSIS [None]
  - PAIN IN JAW [None]
  - SKIN LESION [None]
  - SWELLING [None]
